FAERS Safety Report 5729392-8 (Version None)
Quarter: 2008Q2

REPORT INFORMATION
  Report Type: 
  Country: None (occurrence: None)
  Receive Date: 20080430
  Receipt Date: 20080216
  Transmission Date: 20081010
  Serious: No
  Sender: FDA-Public Use
  Company Number: 2008PV034277

PATIENT
  Age: 50 Year
  Sex: Female
  Weight: 87.0906 kg

DRUGS (7)
  1. SYMLIN [Suspect]
     Indication: TYPE 2 DIABETES MELLITUS
     Dosage: 120 MCG;TID;SC
     Route: 058
     Dates: start: 20080201
  2. SYMLIN [Suspect]
     Indication: TYPE 2 DIABETES MELLITUS
     Dosage: 120 MCG;TID;SC, 60 MCG;TID;SC
     Route: 058
     Dates: start: 20070801, end: 20071001
  3. SYMLIN [Suspect]
     Indication: TYPE 2 DIABETES MELLITUS
     Dosage: 120 MCG;TID;SC, 60 MCG;TID;SC
     Route: 058
     Dates: start: 20071001, end: 20080201
  4. LANTUS [Concomitant]
  5. METFORMIN [Concomitant]
  6. WELLBUTRIN [Concomitant]
  7. NOVOLOG [Concomitant]

REACTIONS (2)
  - DRUG PRESCRIBING ERROR [None]
  - GLYCOSYLATED HAEMOGLOBIN INCREASED [None]
